FAERS Safety Report 4503612-X (Version None)
Quarter: 2004Q4

REPORT INFORMATION
  Report Type: 
  Country: None (occurrence: None)
  Receive Date: 20041115
  Receipt Date: 20041029
  Transmission Date: 20050328
  Serious: Yes (Death)
  Sender: FDA-Public Use
  Company Number: 9159

PATIENT
  Age: 72 Year
  Sex: 0

DRUGS (4)
  1. AMIODARONE HCL [Suspect]
     Indication: ATRIAL FLUTTER
     Dosage: 1200 MG/600 MG  IV
     Route: 042
     Dates: start: 20040905, end: 20040907
  2. AMIODARONE HCL [Suspect]
     Indication: ATRIAL FLUTTER
     Dosage: 1200 MG/600 MG  IV
     Route: 042
     Dates: start: 20040907, end: 20040912
  3. DIGOXIN [Concomitant]
  4. BISOPROLOL FUMARATE [Concomitant]

REACTIONS (2)
  - ALVEOLITIS FIBROSING [None]
  - RENAL FAILURE ACUTE [None]
